FAERS Safety Report 15861319 (Version 3)
Quarter: 2019Q1

REPORT INFORMATION
  Report Type: Spontaneous
  Country: US (occurrence: US)
  Receive Date: 20190124
  Receipt Date: 20190222
  Transmission Date: 20190417
  Serious: Yes (Other)
  Sender: FDA-Public Use
  Company Number: US-AMGEN INC.-USASP2019010549

PATIENT
  Age: 61 Year
  Sex: Male

DRUGS (2)
  1. AIMOVIG [Suspect]
     Active Substance: ERENUMAB-AOOE
     Indication: MIGRAINE PROPHYLAXIS
     Dosage: 70 MG, QMO
     Route: 065
     Dates: start: 201805, end: 2018
  2. AIMOVIG [Suspect]
     Active Substance: ERENUMAB-AOOE
     Dosage: 140 MG, QMO
     Route: 065
     Dates: start: 201812

REACTIONS (3)
  - Diabetes mellitus [Unknown]
  - Abdominal pain upper [Recovered/Resolved]
  - Hepatic steatosis [Unknown]

NARRATIVE: CASE EVENT DATE: 2018
